FAERS Safety Report 11809115 (Version 1)
Quarter: 2015Q4

REPORT INFORMATION
  Report Type: Report from Study
  Country: US (occurrence: US)
  Receive Date: 20151207
  Receipt Date: 20151207
  Transmission Date: 20160305
  Serious: Yes (Other)
  Sender: FDA-Public Use
  Company Number: US-ABBVIE-15P-163-1512141-00

PATIENT
  Age: 41 Year
  Sex: Female

DRUGS (3)
  1. ZOLOFT [Concomitant]
     Active Substance: SERTRALINE HYDROCHLORIDE
     Indication: ANXIETY
  2. ZOLOFT [Concomitant]
     Active Substance: SERTRALINE HYDROCHLORIDE
     Indication: POSTPARTUM DEPRESSION
     Route: 048
  3. LUPRON DEPOT [Suspect]
     Active Substance: LEUPROLIDE ACETATE
     Indication: ENDOMETRIOSIS
     Route: 050
     Dates: start: 201407

REACTIONS (7)
  - Peripheral swelling [Not Recovered/Not Resolved]
  - Ovarian cyst [Recovering/Resolving]
  - Rheumatoid arthritis [Unknown]
  - Coccydynia [Recovering/Resolving]
  - Rheumatoid arthritis [Unknown]
  - Pelvic pain [Not Recovered/Not Resolved]
  - Ovarian cyst ruptured [Unknown]

NARRATIVE: CASE EVENT DATE: 2014
